FAERS Safety Report 25773883 (Version 1)
Quarter: 2025Q3

REPORT INFORMATION
  Report Type: Spontaneous
  Country: HK (occurrence: HK)
  Receive Date: 20250908
  Receipt Date: 20250908
  Transmission Date: 20251021
  Serious: Yes (Other)
  Sender: MERCK SHARP & DOHME LLC
  Company Number: HK-009507513-2326033

PATIENT
  Age: 52 Year
  Sex: Female

DRUGS (5)
  1. PEMBROLIZUMAB [Suspect]
     Active Substance: PEMBROLIZUMAB
     Indication: Triple negative breast cancer
     Dosage: 100 MG, Q3W (TOTAL CYCLE 13)
     Dates: start: 20240408, end: 20250214
  2. PACLITAXEL [Suspect]
     Active Substance: PACLITAXEL
     Indication: Triple negative breast cancer
     Dosage: 125 MG, WEEKLY
     Dates: start: 20240408, end: 2024
  3. CARBOPLATIN [Suspect]
     Active Substance: CARBOPLATIN
     Indication: Triple negative breast cancer
     Dosage: AREA UNDER CURVE (AUC) 5 ONCE WEEKLY (Q1W)
     Dates: start: 20240408, end: 2024
  4. DOXORUBICIN [Suspect]
     Active Substance: DOXORUBICIN
     Indication: Triple negative breast cancer
     Dosage: Q3W (TOTAL CYCLE 4)
     Dates: start: 2024, end: 20240917
  5. CYCLOPHOSPHAMIDE [Suspect]
     Active Substance: CYCLOPHOSPHAMIDE
     Indication: Triple negative breast cancer
     Dosage: Q3W (TOTAL CYCLE 4)
     Dates: start: 2024, end: 20240917

REACTIONS (2)
  - Febrile neutropenia [Unknown]
  - Incorrect dose administered [Unknown]

NARRATIVE: CASE EVENT DATE: 20240408
